FAERS Safety Report 8311161-6 (Version None)
Quarter: 2012Q2

REPORT INFORMATION
  Report Type: 
  Country: None (occurrence: None)
  Receive Date: 20120423
  Receipt Date: 20120406
  Transmission Date: 20120825
  Serious: Yes (Hospitalization, Other)
  Sender: FDA-Public Use
  Company Number: DSA_56219_2012

PATIENT
  Sex: Female
  Weight: 76.9301 kg

DRUGS (13)
  1. GLUCOBAY [Concomitant]
  2. PEGAPTANIB SODIUM [Suspect]
     Indication: DIABETIC RETINAL OEDEMA
     Dosage: (DF INTRAOCULAR)
     Route: 031
     Dates: start: 20111212, end: 20120315
  3. LEVEMIR [Concomitant]
  4. METFORMIN HYDROCHLORIDE [Concomitant]
  5. URITOS [Concomitant]
  6. PATANOL [Concomitant]
  7. NOVORAPID [Concomitant]
  8. CANDESARTAN CILEXETIL AND HYDROCHLOROTHIAZIDE [Concomitant]
  9. NEO-MEDROL [Concomitant]
  10. DIAZEPAM [Concomitant]
  11. RABEPRAZOLE SODIUM [Concomitant]
  12. CRESTOR [Concomitant]
  13. URSO 250 [Concomitant]

REACTIONS (4)
  - CORONARY ARTERY STENOSIS [None]
  - CEREBRAL INFARCTION [None]
  - DIZZINESS [None]
  - ANGINA PECTORIS [None]
